FAERS Safety Report 23926575 (Version 1)
Quarter: 2024Q2

REPORT INFORMATION
  Report Type: Spontaneous
  Country: US (occurrence: US)
  Receive Date: 20240531
  Receipt Date: 20240531
  Transmission Date: 20240716
  Serious: No
  Sender: FDA-Public Use
  Company Number: US-RADIUS HEALTH INC.-2023US002896

PATIENT
  Age: 62 Year
  Sex: Female

DRUGS (2)
  1. TYMLOS [Suspect]
     Active Substance: ABALOPARATIDE
     Indication: Senile osteoporosis
     Dosage: 80 MICROGRAM, QD
     Route: 058
     Dates: start: 20230523
  2. TYMLOS [Suspect]
     Active Substance: ABALOPARATIDE
     Dosage: REDUCED DOSE AND UP DOSING SLOWLY BY 1 CLICK EVERY WEEK, ALSO EVERY 3 DAY DOSING
     Route: 058
     Dates: end: 20230701

REACTIONS (5)
  - Muscular weakness [Unknown]
  - Nausea [Unknown]
  - Fatigue [Unknown]
  - Drug hypersensitivity [Unknown]
  - Intentional product misuse [Recovered/Resolved]

NARRATIVE: CASE EVENT DATE: 20230523
